FAERS Safety Report 9699268 (Version 1)
Quarter: 2013Q4

REPORT INFORMATION
  Report Type: Spontaneous
  Country: US (occurrence: US)
  Receive Date: 20131120
  Receipt Date: 20131120
  Transmission Date: 20140711
  Serious: No
  Sender: FDA-Public Use
  Company Number: US-GILEAD-2008-0015406

PATIENT
  Age: 66 Year
  Sex: Female
  Weight: 96.16 kg

DRUGS (21)
  1. LETAIRIS [Suspect]
     Indication: PULMONARY ARTERIAL HYPERTENSION
     Route: 048
     Dates: start: 20071101
  2. REVATIO [Concomitant]
     Indication: PULMONARY ARTERIAL HYPERTENSION
     Route: 048
     Dates: start: 20080131
  3. LISINOPRIL [Concomitant]
     Route: 048
  4. NORVASC [Concomitant]
     Route: 048
  5. TOPROL XL [Concomitant]
     Route: 048
  6. HYDROCHLOROTHIAZIDE [Concomitant]
     Route: 048
  7. DIOVAN [Concomitant]
     Route: 048
  8. PREDNISONE [Concomitant]
     Route: 048
  9. DARVOCET [Concomitant]
     Route: 048
  10. DOXYCYCLINE [Concomitant]
     Route: 048
  11. LEFLUNOMIDE [Concomitant]
     Route: 048
  12. METHOTREXATE [Concomitant]
     Route: 048
  13. PLAQUENIL [Concomitant]
     Route: 048
  14. ASACOL [Concomitant]
     Route: 048
  15. SINGULAIR [Concomitant]
     Route: 048
  16. FLONASE [Concomitant]
     Route: 045
  17. AMBIEN [Concomitant]
     Route: 048
  18. LORAZEPAM [Concomitant]
     Route: 048
  19. CRESTOR [Concomitant]
     Route: 048
  20. NEXIUM [Concomitant]
     Route: 048
  21. FOLIC ACID [Concomitant]
     Route: 048

REACTIONS (2)
  - Contusion [Unknown]
  - Pruritus [Unknown]
